FAERS Safety Report 18424831 (Version 2)
Quarter: 2022Q1

REPORT INFORMATION
  Report Type: Spontaneous
  Country: PT (occurrence: PT)
  Receive Date: 20201026
  Receipt Date: 20220203
  Transmission Date: 20220424
  Serious: Yes (Hospitalization, Other)
  Sender: FDA-Public Use
  Company Number: None

PATIENT
  Age: 73 Year
  Sex: Female

DRUGS (4)
  1. OLMESARTAN [Suspect]
     Active Substance: OLMESARTAN
     Indication: Hypertension
     Route: 048
  2. LERCANIDIPINE [Concomitant]
     Active Substance: LERCANIDIPINE
     Indication: Hypertension
     Route: 048
  3. EZETIMIBE [Concomitant]
     Active Substance: EZETIMIBE
     Indication: Dyslipidaemia
     Route: 048
  4. APIXABAN [Concomitant]
     Active Substance: APIXABAN
     Indication: Atrial fibrillation
     Route: 048

REACTIONS (13)
  - Intestinal villi atrophy [Recovered/Resolved]
  - Diarrhoea [Recovered/Resolved]
  - Ileal ulcer [Recovered/Resolved]
  - Acute kidney injury [Recovered/Resolved]
  - Malnutrition [Recovered/Resolved]
  - Weight decreased [Recovered/Resolved]
  - Sprue-like enteropathy [Recovered/Resolved]
  - Abdominal pain [Recovered/Resolved]
  - Renal impairment [Recovered/Resolved]
  - Inflammatory bowel disease [Unknown]
  - Gastrointestinal ulcer [Unknown]
  - Gastroenteritis [Unknown]
  - Malabsorption [Unknown]
